FAERS Safety Report 6876525-6 (Version None)
Quarter: 2010Q3

REPORT INFORMATION
  Report Type: 
  Country: None (occurrence: None)
  Receive Date: 20100727
  Receipt Date: 20100719
  Transmission Date: 20110219
  Serious: No
  Sender: FDA-Public Use
  Company Number: US-BAYER-201028313NA

PATIENT
  Age: 65 Year
  Sex: Female
  Weight: 75 kg

DRUGS (8)
  1. ULTRAVIST 300 [Suspect]
     Indication: COMPUTERISED TOMOGRAM ABDOMEN
     Dosage: AS USED: 112 ML
     Route: 042
     Dates: start: 20100719, end: 20100719
  2. COREG [Concomitant]
  3. PLAVIX [Concomitant]
  4. ASPIRIN [Concomitant]
  5. ZEHE [Concomitant]
  6. ATACAND [Concomitant]
  7. CARDIZEM CD [Concomitant]
  8. ACIPHEX [Concomitant]

REACTIONS (1)
  - THROAT TIGHTNESS [None]
